FAERS Safety Report 8923561 (Version 2)
Quarter: 2012Q4

REPORT INFORMATION
  Report Type: 
  Country: JP (occurrence: JP)
  Receive Date: 20121123
  Receipt Date: 20121130
  Transmission Date: 20130627
  Serious: Yes (Other)
  Sender: FDA-Public Use
  Company Number: JP-PFIZER INC-2012291467

PATIENT
  Age: 7 None
  Sex: Female

DRUGS (3)
  1. NORVASC [Suspect]
     Dosage: 2.5 mg daily
  2. PRAVASTATIN SODIUM [Concomitant]
     Dosage: UNK
  3. FOSAMAC [Concomitant]
     Indication: OSTEOPOROSIS
     Dosage: UNK

REACTIONS (3)
  - Aplastic anaemia [Unknown]
  - Rash [Unknown]
  - Gingival bleeding [Unknown]
